FAERS Safety Report 7715235-X (Version None)
Quarter: 2011Q3

REPORT INFORMATION
  Report Type: 
  Country: None (occurrence: None)
  Receive Date: 20110829
  Receipt Date: 20110823
  Transmission Date: 20111222
  Serious: Yes (Life-Threatening, Hospitalization)
  Sender: FDA-Public Use
  Company Number: PHHY2011CA76237

PATIENT
  Sex: Female

DRUGS (5)
  1. CLOZAPINE [Suspect]
     Indication: PARANOIA
     Dosage: 260 MG
     Route: 048
     Dates: start: 19940401
  2. CLOZAPINE [Suspect]
     Dosage: 300 MG
     Route: 048
  3. LORAZEPAM [Concomitant]
  4. ESCITALOPRAM [Concomitant]
  5. COGENTIN [Concomitant]

REACTIONS (6)
  - RHABDOMYOLYSIS [None]
  - MYALGIA [None]
  - GAIT DISTURBANCE [None]
  - NEUROLEPTIC MALIGNANT SYNDROME [None]
  - BLOOD CREATINE PHOSPHOKINASE INCREASED [None]
  - MALAISE [None]
